FAERS Safety Report 4491487-7 (Version None)
Quarter: 2004Q4

REPORT INFORMATION
  Report Type: 
  Country: None (occurrence: None)
  Receive Date: 20041101
  Receipt Date: 20041022
  Transmission Date: 20050328
  Serious: Yes (Hospitalization)
  Sender: FDA-Public Use
  Company Number: 2004-10-1425

PATIENT
  Age: 54 Year
  Sex: Male

DRUGS (1)
  1. PEG-INTRON [Suspect]
     Indication: RENAL CANCER METASTATIC
     Dosage: QWK

REACTIONS (2)
  - CEREBRAL HAEMORRHAGE [None]
  - MONOPLEGIA [None]
